FAERS Safety Report 9187604 (Version 1)
Quarter: 2013Q1

REPORT INFORMATION
  Report Type: Other
  Country: US (occurrence: US)
  Receive Date: 20130325
  Receipt Date: 20130325
  Transmission Date: 20140127
  Serious: Yes (Death)
  Sender: FDA-Public Use
  Company Number: US-SHIRE-ALL1-2013-01673

PATIENT
  Sex: Male

DRUGS (2)
  1. FOSRENOL [Suspect]
     Indication: PRODUCT USED FOR UNKNOWN INDICATION
     Dosage: 1000 MG, 3X/DAY:TID (WITH MEALS)
     Route: 048
     Dates: start: 2012
  2. FOSRENOL [Suspect]
     Dosage: 500 MG, 2X/DAY:BID (WITH SNACKS)
     Route: 048
     Dates: start: 2012

REACTIONS (1)
  - Death [Fatal]
